FAERS Safety Report 10508180 (Version 1)
Quarter: 2014Q4

REPORT INFORMATION
  Report Type: Spontaneous
  Country: IT (occurrence: DE)
  Receive Date: 20141009
  Receipt Date: 20141009
  Transmission Date: 20150528
  Serious: Yes (Other)
  Sender: FDA-Public Use
  Company Number: DE-FRI-1000071243

PATIENT
  Age: 31 Year
  Sex: Female

DRUGS (4)
  1. PANTOPRAZOLE [Concomitant]
     Active Substance: PANTOPRAZOLE SODIUM
  2. PERENTEROL FORTE [Concomitant]
     Active Substance: SACCHAROMYCES CEREVISIAE
  3. FLUOMIZIN [Concomitant]
  4. FOSFOMYCIN [Suspect]
     Active Substance: FOSFOMYCIN
     Indication: URINARY TRACT INFECTION
     Dosage: 3000 MG
     Route: 048
     Dates: start: 20140926, end: 20140926

REACTIONS (2)
  - Gastrointestinal sounds abnormal [Recovered/Resolved]
  - Haematochezia [Recovered/Resolved]

NARRATIVE: CASE EVENT DATE: 20140926
